FAERS Safety Report 9424203 (Version 3)
Quarter: 2013Q4

REPORT INFORMATION
  Report Type: Spontaneous
  Country: BE (occurrence: BE)
  Receive Date: 20130729
  Receipt Date: 20131106
  Transmission Date: 20140711
  Serious: Yes (Disabling, Other)
  Sender: FDA-Public Use
  Company Number: BE-BRISTOL-MYERS SQUIBB COMPANY-19130848

PATIENT
  Age: 62 Year
  Sex: Female
  Weight: 64 kg

DRUGS (8)
  1. BYETTA [Suspect]
     Indication: DIABETES MELLITUS
     Dosage: DOSE VALUE:10MCG BID
     Route: 058
     Dates: start: 200907, end: 201107
  2. METFORMAX [Concomitant]
     Dosage: DOSE VALUE:850UNITS NOS
     Route: 048
  3. ELTHYRONE [Concomitant]
     Route: 048
  4. PRAVASTATINE [Concomitant]
     Route: 048
  5. ZESTRIL [Concomitant]
     Route: 048
  6. FLUDEX [Concomitant]
     Route: 048
  7. XANAX [Concomitant]
     Route: 048
  8. UNI DIAMICRON [Concomitant]
     Dosage: 1DF:30 TO 90MG
     Route: 048

REACTIONS (4)
  - Intraductal papillary-mucinous carcinoma of pancreas [Recovered/Resolved with Sequelae]
  - Pancreatitis chronic [Unknown]
  - Weight decreased [Recovering/Resolving]
  - Diarrhoea [Recovering/Resolving]
